FAERS Safety Report 18516732 (Version 2)
Quarter: 2021Q1

REPORT INFORMATION
  Report Type: Spontaneous
  Country: US (occurrence: US)
  Receive Date: 20201118
  Receipt Date: 20210108
  Transmission Date: 20210419
  Serious: No
  Sender: FDA-Public Use
  Company Number: US-ASTRAZENECA-2020SF37758

PATIENT
  Sex: Female
  Weight: 74.8 kg

DRUGS (4)
  1. PROAIR HFA [Concomitant]
     Active Substance: ALBUTEROL SULFATE
     Indication: DYSPNOEA
     Dates: start: 20201005
  2. PREDNISONE. [Concomitant]
     Active Substance: PREDNISONE
     Indication: DYSPNOEA
     Dates: start: 20201005, end: 20201015
  3. SYMBICORT [Suspect]
     Active Substance: BUDESONIDE\FORMOTEROL FUMARATE DIHYDRATE
     Indication: DYSPNOEA
     Dosage: 160 MCG. TWO PUFFS TWICE EACH DAY
     Route: 055
     Dates: start: 2020
  4. SYMBICORT [Suspect]
     Active Substance: BUDESONIDE\FORMOTEROL FUMARATE DIHYDRATE
     Indication: DYSPNOEA
     Dosage: 160 MCG. TWO PUFFS TWICE EACH DAY
     Route: 055
     Dates: start: 2020

REACTIONS (5)
  - Device failure [Unknown]
  - Drug delivery system malfunction [Unknown]
  - Dyspnoea [Unknown]
  - Intentional device misuse [Recovered/Resolved]
  - Device use issue [Not Recovered/Not Resolved]
